FAERS Safety Report 5050374-6 (Version None)
Quarter: 2006Q3

REPORT INFORMATION
  Report Type: 
  Country: None (occurrence: None)
  Receive Date: 20060713
  Receipt Date: 20060531
  Transmission Date: 20061208
  Serious: Yes (Other)
  Sender: FDA-Public Use
  Company Number: AU-AVENTIS-200616230GDDC

PATIENT
  Age: 64 Year
  Sex: Male

DRUGS (3)
  1. LANTUS [Suspect]
     Route: 058
  2. ATACAND [Concomitant]
     Route: 048
  3. DILATREND [Concomitant]
     Route: 048

REACTIONS (2)
  - HYPERTENSION [None]
  - MALAISE [None]
